FAERS Safety Report 7650519-5 (Version None)
Quarter: 2011Q3

REPORT INFORMATION
  Report Type: 
  Country: None (occurrence: None)
  Receive Date: 20110802
  Receipt Date: 20110722
  Transmission Date: 20111222
  Serious: Yes (Death)
  Sender: FDA-Public Use
  Company Number: JP-GLAXOSMITHKLINE-B0683405A

PATIENT
  Sex: Male
  Weight: 57 kg

DRUGS (78)
  1. ALBUMINAR [Concomitant]
     Route: 042
     Dates: start: 20050524, end: 20050524
  2. GLUCOSE [Concomitant]
     Route: 042
     Dates: start: 20050527, end: 20050527
  3. METILON [Concomitant]
     Dates: start: 20050712, end: 20050712
  4. METILON [Concomitant]
     Dates: start: 20050714, end: 20050715
  5. METILON [Concomitant]
     Dates: start: 20050716, end: 20050716
  6. GRAN [Concomitant]
     Dates: start: 20050516, end: 20050519
  7. CYCLOSPORINE [Concomitant]
     Indication: IMMUNOSUPPRESSION
     Dosage: 140MGM2 PER DAY
     Route: 042
     Dates: start: 20050525, end: 20050816
  8. FUROSEMIDE [Concomitant]
     Route: 048
     Dates: start: 20050530, end: 20050530
  9. FUNGUARD [Concomitant]
     Route: 042
     Dates: start: 20050511, end: 20050512
  10. SODIUM BICARBONATE [Concomitant]
     Route: 042
     Dates: start: 20050525, end: 20050525
  11. MEROPENEM [Concomitant]
     Route: 042
     Dates: start: 20050528, end: 20050528
  12. VOLTAREN [Concomitant]
     Route: 054
     Dates: start: 20050602, end: 20050602
  13. KENEI G [Concomitant]
     Route: 054
     Dates: start: 20050607, end: 20050607
  14. FLUDARA [Suspect]
     Indication: CORD BLOOD TRANSPLANT THERAPY
     Dosage: 40MGM2 PER DAY
     Route: 042
     Dates: start: 20050520, end: 20050522
  15. ITRACONAZOLE [Concomitant]
     Route: 048
     Dates: start: 20050511, end: 20050511
  16. GLYCEOL [Concomitant]
     Route: 042
     Dates: start: 20050523, end: 20050523
  17. HYPO ETHANOL [Concomitant]
     Route: 061
     Dates: start: 20050518, end: 20050518
  18. TELEMIN SOFT [Concomitant]
     Route: 054
     Dates: start: 20050612, end: 20050612
  19. VOLTAREN [Concomitant]
     Route: 054
     Dates: start: 20050606, end: 20050606
  20. VOLTAREN [Concomitant]
     Route: 054
     Dates: start: 20050613, end: 20050613
  21. VOLTAREN [Concomitant]
     Route: 054
     Dates: start: 20050703, end: 20050703
  22. KENEI G [Concomitant]
     Route: 054
     Dates: start: 20050616, end: 20050616
  23. DISTILLED WATER [Concomitant]
     Dates: start: 20050613, end: 20050613
  24. PREDOPA [Concomitant]
     Route: 042
     Dates: start: 20050602, end: 20050602
  25. NEUART [Concomitant]
     Route: 042
     Dates: start: 20050701, end: 20050701
  26. CONCLYTE-MG [Concomitant]
     Route: 042
     Dates: start: 20050702, end: 20050702
  27. SULFAMETHOXAZOLE [Concomitant]
     Route: 048
     Dates: start: 20050729, end: 20050729
  28. LANSOPRAZOLE [Concomitant]
     Route: 048
     Dates: start: 20050523, end: 20050523
  29. LANSOPRAZOLE [Concomitant]
     Route: 048
     Dates: start: 20050730, end: 20050730
  30. VANCOMYCIN [Concomitant]
     Route: 042
     Dates: start: 20050530, end: 20050531
  31. HEPARIN [Concomitant]
     Route: 042
     Dates: start: 20050526, end: 20050526
  32. XYLOCAINE [Concomitant]
     Route: 061
     Dates: start: 20050613, end: 20050613
  33. METILON [Concomitant]
     Dates: start: 20050724, end: 20050724
  34. GRAN [Concomitant]
     Dates: start: 20050616, end: 20050629
  35. PURSENNID [Concomitant]
     Route: 048
     Dates: start: 20050530, end: 20050530
  36. FUROSEMIDE [Concomitant]
     Route: 048
     Dates: start: 20050527, end: 20050527
  37. SULFAMETHOXAZOLE [Concomitant]
     Route: 048
     Dates: start: 20050511, end: 20050511
  38. ZOVIRAX [Concomitant]
     Route: 048
     Dates: start: 20050525, end: 20050525
  39. CYTARABINE [Concomitant]
     Route: 042
     Dates: start: 20050511, end: 20050511
  40. ASPARA K [Concomitant]
     Route: 042
     Dates: start: 20050513, end: 20050514
  41. CALCICOL [Concomitant]
     Route: 042
     Dates: start: 20050515, end: 20050515
  42. HEPARIN [Concomitant]
     Route: 042
     Dates: start: 20050518, end: 20050521
  43. HEPARIN [Concomitant]
     Route: 042
     Dates: start: 20050522, end: 20050522
  44. HEPARIN [Concomitant]
     Route: 042
     Dates: start: 20050524, end: 20050525
  45. HEPARIN [Concomitant]
     Route: 042
     Dates: start: 20050527, end: 20050531
  46. LAXOBERON [Concomitant]
     Route: 048
     Dates: start: 20050602, end: 20050602
  47. VOLTAREN [Concomitant]
     Route: 054
     Dates: start: 20050607, end: 20050609
  48. GLYCERIN [Concomitant]
     Route: 054
     Dates: start: 20050621, end: 20050621
  49. LAXOBERON [Concomitant]
     Route: 048
     Dates: start: 20050726, end: 20050726
  50. GRAN [Concomitant]
     Dates: start: 20050526, end: 20050531
  51. URSO 250 [Concomitant]
     Route: 048
     Dates: start: 20050520, end: 20050520
  52. URSO 250 [Concomitant]
     Route: 048
     Dates: start: 20050602, end: 20050602
  53. LEVOFLOXACIN [Concomitant]
     Route: 048
     Dates: start: 20050511, end: 20050511
  54. ENTERONON-R [Concomitant]
     Route: 048
     Dates: start: 20050523, end: 20050523
  55. CYTARABINE [Concomitant]
     Route: 042
     Dates: start: 20050512, end: 20050513
  56. SAXIZON [Concomitant]
     Route: 042
     Dates: start: 20050526, end: 20050526
  57. HEPARIN [Concomitant]
     Route: 042
     Dates: start: 20050523, end: 20050523
  58. VOLTAREN [Concomitant]
     Route: 054
     Dates: start: 20050622, end: 20050622
  59. KENEI G [Concomitant]
     Route: 054
     Dates: start: 20050622, end: 20050622
  60. LEVOFLOXACIN [Concomitant]
     Route: 031
     Dates: start: 20050608, end: 20050608
  61. ALLOPURINOL [Concomitant]
     Route: 048
     Dates: start: 20050728, end: 20050728
  62. ENSURE [Concomitant]
     Route: 048
     Dates: start: 20050722, end: 20050722
  63. MOHRUS TAPE [Concomitant]
     Route: 062
     Dates: start: 20050719, end: 20050719
  64. METILON [Concomitant]
     Dates: start: 20050708, end: 20050708
  65. METILON [Concomitant]
     Dates: start: 20050723, end: 20050723
  66. SULFAMETHOXAZOLE [Concomitant]
     Route: 048
     Dates: start: 20050518, end: 20050518
  67. CYTARABINE [Concomitant]
     Route: 042
     Dates: start: 20050514, end: 20050514
  68. GLUCOSE [Concomitant]
     Route: 042
     Dates: start: 20050529, end: 20050529
  69. VOLTAREN [Concomitant]
     Route: 054
     Dates: start: 20050615, end: 20050615
  70. KENEI G [Concomitant]
     Route: 054
     Dates: start: 20050610, end: 20050610
  71. METILON [Concomitant]
     Dates: start: 20050726, end: 20050726
  72. ALKERAN [Suspect]
     Indication: CORD BLOOD TRANSPLANT THERAPY
     Dosage: 22.5MGM2 PER DAY
     Route: 042
     Dates: start: 20050525, end: 20050525
  73. GRAN [Concomitant]
     Dates: start: 20050527, end: 20050626
  74. LOXONIN [Concomitant]
     Route: 048
     Dates: start: 20050511, end: 20050511
  75. POTACOL-R [Concomitant]
     Route: 042
     Dates: start: 20050518, end: 20050518
  76. TELEMIN SOFT [Concomitant]
     Route: 054
     Dates: start: 20050606, end: 20050606
  77. METILON [Concomitant]
     Dates: start: 20050710, end: 20050711
  78. METILON [Concomitant]
     Dates: start: 20050722, end: 20050722

REACTIONS (1)
  - FUNGAEMIA [None]
